FAERS Safety Report 17724411 (Version 1)
Quarter: 2020Q2

REPORT INFORMATION
  Report Type: Report from Study
  Country: None (occurrence: US)
  Receive Date: 20200429
  Receipt Date: 20200429
  Transmission Date: 20200714
  Serious: Yes (Hospitalization, Other)
  Sender: FDA-Public Use
  Company Number: US-BIOVITRUM-2019US4048

PATIENT
  Age: 90 Year
  Sex: Male

DRUGS (2)
  1. KINERET [Suspect]
     Active Substance: ANAKINRA
     Route: 058
     Dates: start: 20190307
  2. KINERET [Suspect]
     Active Substance: ANAKINRA
     Indication: GOUT
     Route: 058
     Dates: start: 20190307

REACTIONS (10)
  - Blood creatinine increased [Unknown]
  - Pneumonia [Unknown]
  - Pneumonia aspiration [Unknown]
  - Off label use [Not Recovered/Not Resolved]
  - Condition aggravated [Unknown]
  - Product storage error [Unknown]
  - Cellulitis [Unknown]
  - Gout [Unknown]
  - Malaise [Unknown]
  - Arthralgia [Unknown]

NARRATIVE: CASE EVENT DATE: 20190307
